FAERS Safety Report 10722784 (Version 3)
Quarter: 2015Q2

REPORT INFORMATION
  Report Type: Spontaneous
  Country: US (occurrence: US)
  Receive Date: 20150120
  Receipt Date: 20150421
  Transmission Date: 20150821
  Serious: Yes (Other)
  Sender: FDA-Public Use
  Company Number: US-BEH-2015047864

PATIENT
  Age: 25 Year
  Sex: Female

DRUGS (2)
  1. HUMATE-P [Suspect]
     Active Substance: HUMAN COAGULATION FACTOR VIII/VON WILLEBRAND FACTOR COMPLEX
     Indication: VON WILLEBRAND^S DISEASE
     Dosage: EVERY 24 HOURS AS NEEDED; STARTED IN 1995 FOR BLEEDING
     Route: 042
  2. LEVSIN [Concomitant]
     Active Substance: HYOSCYAMINE SULFATE

REACTIONS (3)
  - Contusion [Unknown]
  - Road traffic accident [Unknown]
  - Post-traumatic neck syndrome [Unknown]

NARRATIVE: CASE EVENT DATE: 20150105
